FAERS Safety Report 20547593 (Version 2)
Quarter: 2022Q2

REPORT INFORMATION
  Report Type: Report from Study
  Country: US (occurrence: US)
  Receive Date: 20220303
  Receipt Date: 20220413
  Transmission Date: 20220721
  Serious: No
  Sender: FDA-Public Use
  Company Number: US-JNJFOC-20220235325

PATIENT
  Age: 53 Year
  Sex: Male

DRUGS (4)
  1. TREMFYA [Suspect]
     Active Substance: GUSELKUMAB
     Indication: Psoriatic arthropathy
     Dosage: LAST DOSE WAS ON 02-FEB-2022
     Route: 058
     Dates: start: 202111
  2. TREMFYA [Suspect]
     Active Substance: GUSELKUMAB
  3. TREMFYA [Suspect]
     Active Substance: GUSELKUMAB
     Indication: Psoriatic arthropathy
     Route: 058
     Dates: start: 202111
  4. TREMFYA [Suspect]
     Active Substance: GUSELKUMAB

REACTIONS (3)
  - Device leakage [Unknown]
  - Drug ineffective [Unknown]
  - Drug delivery system malfunction [Unknown]
